FAERS Safety Report 22603636 (Version 1)
Quarter: 2023Q2

REPORT INFORMATION
  Report Type: Spontaneous
  Country: US (occurrence: US)
  Receive Date: 20230615
  Receipt Date: 20230615
  Transmission Date: 20230722
  Serious: Yes (Hospitalization, Other)
  Sender: FDA-Public Use
  Company Number: US-009507513-2306USA005837

PATIENT
  Age: 62 Year
  Sex: Male

DRUGS (2)
  1. KEYTRUDA [Suspect]
     Active Substance: PEMBROLIZUMAB
     Indication: Renal cell carcinoma
     Dosage: EVERY 3 WEEKS (Q3W)
     Route: 042
     Dates: start: 20221216, end: 20221216
  2. KEYTRUDA [Suspect]
     Active Substance: PEMBROLIZUMAB
     Dosage: EVERY 3 WEEKS (Q3W)
     Route: 042
     Dates: start: 20230113, end: 20230113

REACTIONS (7)
  - Hepatic enzyme increased [Recovering/Resolving]
  - Peptic ulcer [Unknown]
  - Speech sound disorder [Unknown]
  - Muscular weakness [Unknown]
  - Gait disturbance [Unknown]
  - Dyspnoea [Unknown]
  - Inappropriate schedule of product administration [Unknown]

NARRATIVE: CASE EVENT DATE: 20230101
